FAERS Safety Report 14846102 (Version 1)
Quarter: 2018Q2

REPORT INFORMATION
  Report Type: Spontaneous
  Country: GB (occurrence: GB)
  Receive Date: 20180504
  Receipt Date: 20180504
  Transmission Date: 20180711
  Serious: Yes (Hospitalization)
  Sender: FDA-Public Use
  Company Number: GB-TEVA-2018-GB-889541

PATIENT
  Age: 19 Year
  Sex: Female

DRUGS (6)
  1. CETIRIZINE [Concomitant]
     Active Substance: CETIRIZINE HYDROCHLORIDE
     Dosage: ONE AT NIGHT
  2. PARACETAMOL [Concomitant]
     Active Substance: ACETAMINOPHEN
     Dosage: ONE OR TWO WHEN REQUIRED
  3. OMEPRAZOLE. [Concomitant]
     Active Substance: OMEPRAZOLE
  4. RANITIDINE. [Suspect]
     Active Substance: RANITIDINE
     Indication: GASTROINTESTINAL DISORDER
     Dosage: 600 MILLIGRAM DAILY;
     Route: 065
  5. SODIUM [Concomitant]
     Active Substance: SODIUM
     Dosage: 1 DAYS
  6. ONDANSETRON [Concomitant]
     Active Substance: ONDANSETRON
     Dosage: ONE WHEN REQUIRED

REACTIONS (11)
  - Chest discomfort [Recovered/Resolved]
  - Pruritus [Recovered/Resolved]
  - Dizziness [Recovered/Resolved]
  - Nasopharyngitis [Recovered/Resolved]
  - Anaphylactoid reaction [Recovered/Resolved]
  - Abdominal pain [Recovered/Resolved]
  - Rash macular [Recovered/Resolved]
  - Chills [Recovered/Resolved]
  - Flushing [Recovered/Resolved]
  - Rhinorrhoea [Recovered/Resolved]
  - Throat tightness [Recovered/Resolved]
